FAERS Safety Report 8907767 (Version 1)
Quarter: 2012Q4

REPORT INFORMATION
  Report Type: 
  Country: US (occurrence: US)
  Receive Date: 20121113
  Receipt Date: 20121113
  Transmission Date: 20130627
  Serious: Yes (Other)
  Sender: FDA-Public Use
  Company Number: CHPA2012US023188

PATIENT
  Age: 77 Year
  Sex: Male

DRUGS (3)
  1. BENEFIBER UNKNOWN [Suspect]
     Indication: NUTRITIONAL SUPPORT
     Dosage: 3 TSP, BID
     Route: 048
     Dates: end: 2012
  2. ANTIHYPERTENSIVES [Concomitant]
     Indication: HYPERTENSION
     Dosage: UNK, UNK
     Route: 048
  3. FIBER [Concomitant]
     Dosage: UNK, UNK

REACTIONS (2)
  - Diverticulum [Not Recovered/Not Resolved]
  - Incorrect dose administered [Unknown]
